FAERS Safety Report 20934334 (Version 1)
Quarter: 2022Q2

REPORT INFORMATION
  Report Type: Spontaneous
  Country: US (occurrence: None)
  Receive Date: 20220607
  Receipt Date: 20220607
  Transmission Date: 20220721
  Serious: Yes (Hospitalization)
  Sender: FDA-Public Use
  Company Number: None

PATIENT
  Age: 91 Year
  Sex: Female

DRUGS (1)
  1. CAPECITABINE [Suspect]
     Active Substance: CAPECITABINE
     Dosage: 500MG BID ORAL
     Route: 048

REACTIONS (7)
  - Urinary tract infection [None]
  - Vulvovaginal burning sensation [None]
  - Fatigue [None]
  - Scab [None]
  - Oedema peripheral [None]
  - Alopecia [None]
  - Haemorrhoids [None]

NARRATIVE: CASE EVENT DATE: 20220607
